FAERS Safety Report 8983620 (Version 1)
Quarter: 2012Q4

REPORT INFORMATION
  Report Type: 
  Country: US (occurrence: US)
  Receive Date: 20121224
  Receipt Date: 20121224
  Transmission Date: 20130627
  Serious: No
  Sender: FDA-Public Use
  Company Number: US-009507513-1212USA006445

PATIENT

DRUGS (4)
  1. BOCEPREVIR [Suspect]
     Indication: HEPATITIS C
     Dosage: 800 mg, q8h
  2. CYCLOSPORINE [Interacting]
     Indication: HEPATITIS C
     Dosage: 100 mg, q12h
  3. INTERFERON (UNSPECIFIED) [Suspect]
     Indication: HEPATITIS C
  4. RIBAVIRIN [Suspect]
     Indication: HEPATITIS C

REACTIONS (1)
  - Drug interaction [Unknown]
